FAERS Safety Report 5396002-1 (Version None)
Quarter: 2007Q3

REPORT INFORMATION
  Report Type: 
  Country: None (occurrence: None)
  Receive Date: 20070724
  Receipt Date: 20070712
  Transmission Date: 20080115
  Serious: Yes (Other)
  Sender: FDA-Public Use
  Company Number: US-PFIZER INC-2007058317

PATIENT
  Sex: Male
  Weight: 99.8 kg

DRUGS (1)
  1. CELEBREX [Suspect]
     Indication: ARTHRITIS
     Dosage: DAILY DOSE:200MG

REACTIONS (2)
  - GASTROOESOPHAGEAL REFLUX DISEASE [None]
  - THROMBOSIS [None]
